FAERS Safety Report 21456733 (Version 2)
Quarter: 2022Q4

REPORT INFORMATION
  Report Type: Spontaneous
  Country: US (occurrence: US)
  Receive Date: 20221014
  Receipt Date: 20221123
  Transmission Date: 20230113
  Serious: No
  Sender: FDA-Public Use
  Company Number: US-GSK-US2022145809

PATIENT
  Sex: Male

DRUGS (1)
  1. JEMPERLI [Interacting]
     Active Substance: DOSTARLIMAB-GXLY
     Indication: Rectal cancer
     Dosage: 500 MG (Q3W)
     Route: 042
     Dates: start: 20220928

REACTIONS (1)
  - Drug interaction [Unknown]
